FAERS Safety Report 6148842-9 (Version None)
Quarter: 2009Q2

REPORT INFORMATION
  Report Type: 
  Country: None (occurrence: None)
  Receive Date: 20090408
  Receipt Date: 20090327
  Transmission Date: 20091009
  Serious: Yes (Hospitalization)
  Sender: FDA-Public Use
  Company Number: US-MERCK-0904USA00567

PATIENT
  Age: 59 Year
  Sex: Male
  Weight: 107 kg

DRUGS (11)
  1. PRINIVIL [Suspect]
     Indication: HYPERTENSION
     Route: 048
     Dates: end: 19991101
  2. PRINIVIL [Suspect]
     Route: 048
  3. LASIX [Suspect]
     Route: 065
  4. SYNTHROID [Concomitant]
     Route: 065
  5. LORAZEPAM [Concomitant]
     Route: 048
  6. ASPIRIN [Concomitant]
     Route: 048
  7. AMARYL [Concomitant]
     Route: 048
  8. PRILOSEC [Concomitant]
     Route: 048
  9. CYMBALTA [Concomitant]
     Route: 048
  10. VYTORIN [Concomitant]
     Route: 048
  11. JANUVIA [Concomitant]
     Route: 048

REACTIONS (7)
  - DIZZINESS [None]
  - DRUG INEFFECTIVE [None]
  - HEADACHE [None]
  - HYPERTENSION [None]
  - OEDEMA [None]
  - PRESYNCOPE [None]
  - VISION BLURRED [None]
